FAERS Safety Report 10239360 (Version 1)
Quarter: 2014Q2

REPORT INFORMATION
  Report Type: Report from Study
  Country: US (occurrence: US)
  Receive Date: 20140616
  Receipt Date: 20140616
  Transmission Date: 20141212
  Serious: No
  Sender: FDA-Public Use
  Company Number: US-ABBVIE-14P-163-1228918-00

PATIENT
  Sex: Female
  Weight: 113.5 kg

DRUGS (2)
  1. LUPANETA PACK [Suspect]
     Indication: ENDOMETRIOSIS
     Dates: start: 20140328
  2. LUPANETA PACK [Suspect]
     Indication: ENDOMETRIOSIS
     Dates: start: 20140328

REACTIONS (7)
  - Peripheral swelling [Unknown]
  - Dyspnoea [Unknown]
  - Endometriosis [Unknown]
  - Night sweats [Unknown]
  - Vaginal haemorrhage [Unknown]
  - Pelvic pain [Unknown]
  - Hot flush [Unknown]
